FAERS Safety Report 23665635 (Version 1)
Quarter: 2024Q1

REPORT INFORMATION
  Report Type: Spontaneous
  Country: CA (occurrence: CA)
  Receive Date: 20240323
  Receipt Date: 20240323
  Transmission Date: 20240409
  Serious: Yes (Hospitalization, Other)
  Sender: FDA-Public Use
  Company Number: CA-TEVA-VS-3172893

PATIENT
  Age: 78 Year
  Sex: Female

DRUGS (3)
  1. PREDNISONE [Suspect]
     Active Substance: PREDNISONE
     Indication: Polyarthritis
     Route: 048
  2. METHOTREXATE [Suspect]
     Active Substance: METHOTREXATE
     Indication: Polyarthritis
     Route: 048
  3. SIMPONI [Suspect]
     Active Substance: GOLIMUMAB
     Dosage: DOSAGE FORM: SOLUTION INTRAVENOUS
     Route: 041

REACTIONS (7)
  - Aspergillus infection [Recovered/Resolved]
  - Atrial fibrillation [Recovered/Resolved]
  - Disseminated aspergillosis [Recovered/Resolved]
  - Mitral valve incompetence [Recovered/Resolved]
  - Off label use [Recovered/Resolved]
  - Pericarditis fungal [Recovered/Resolved]
  - Tricuspid valve incompetence [Recovered/Resolved]
